FAERS Safety Report 10743213 (Version 5)
Quarter: 2015Q1

REPORT INFORMATION
  Report Type: Spontaneous
  Country: DE (occurrence: DE)
  Receive Date: 20150127
  Receipt Date: 20150318
  Transmission Date: 20150721
  Serious: Yes (Death, Other)
  Sender: FDA-Public Use
  Company Number: DE-ABBVIE-15P-062-1338509-00

PATIENT
  Sex: Female

DRUGS (1)
  1. DUODOPA [Suspect]
     Active Substance: CARBIDOPA\LEVODOPA
     Indication: PARKINSON^S DISEASE
     Route: 050
     Dates: end: 20150116

REACTIONS (9)
  - Device dislocation [Fatal]
  - Catheter site discharge [Unknown]
  - Sepsis [Fatal]
  - Systemic inflammatory response syndrome [Fatal]
  - Enterococcal infection [Unknown]
  - Gastric stenosis [Unknown]
  - Intestinal scarring [Unknown]
  - Stoma site inflammation [Unknown]
  - Myocardial infarction [Fatal]
